FAERS Safety Report 7211587-8 (Version None)
Quarter: 2011Q1

REPORT INFORMATION
  Report Type: 
  Country: None (occurrence: None)
  Receive Date: 20110105
  Receipt Date: 20110103
  Transmission Date: 20110831
  Serious: No
  Sender: FDA-Public Use
  Company Number: US-PFIZER INC-2011001366

PATIENT
  Sex: Female
  Weight: 88.435 kg

DRUGS (3)
  1. NOVOLIN N [Concomitant]
     Indication: DIABETES MELLITUS
     Dosage: 30 IU, UNK
  2. NOVOLOG [Concomitant]
     Indication: DIABETES MELLITUS
     Dosage: 16 IU, UNK
  3. CELEBREX [Suspect]
     Indication: KNEE ARTHROPLASTY
     Dosage: 200 MG, 1X/DAY
     Route: 048
     Dates: start: 20101227, end: 20101227

REACTIONS (1)
  - VOMITING [None]
